FAERS Safety Report 7582421-1 (Version None)
Quarter: 2011Q2

REPORT INFORMATION
  Report Type: 
  Country: None (occurrence: None)
  Receive Date: 20110630
  Receipt Date: 20110624
  Transmission Date: 20111010
  Serious: Yes (Death, Other)
  Sender: FDA-Public Use
  Company Number: GB-ELI_LILLY_AND_COMPANY-GB201106007396

PATIENT
  Age: 35 Year

DRUGS (8)
  1. DIAZEPAM [Concomitant]
  2. METHADONE HCL [Concomitant]
  3. BENZTROPINE MESYLATE [Concomitant]
  4. QUETIAPINE [Concomitant]
  5. FLUOXETINE HCL [Suspect]
  6. CODEINE [Concomitant]
  7. 9-TETRAHYDROCANNABINOL [Concomitant]
  8. NORDIAZEPAM [Concomitant]

REACTIONS (4)
  - PULMONARY CONGESTION [None]
  - RESPIRATORY DEPRESSION [None]
  - ACCIDENTAL OVERDOSE [None]
  - TOXICITY TO VARIOUS AGENTS [None]
